FAERS Safety Report 19253266 (Version 6)
Quarter: 2021Q3

REPORT INFORMATION
  Report Type: Spontaneous
  Country: US (occurrence: US)
  Receive Date: 20210513
  Receipt Date: 20210924
  Transmission Date: 20211014
  Serious: Yes (Other)
  Sender: FDA-Public Use
  Company Number: US-BAYER-2021-140391

PATIENT
  Age: 34 Year
  Sex: Male

DRUGS (8)
  1. KOGENATE FS [Suspect]
     Active Substance: ANTIHEMOPHILIC FACTOR, HUMAN RECOMBINANT
     Indication: FACTOR VIII DEFICIENCY
     Dosage: USED 1 MAJOR DOSE TO RESOLVE BLEED
  2. KOGENATE FS [Suspect]
     Active Substance: ANTIHEMOPHILIC FACTOR, HUMAN RECOMBINANT
     Indication: FACTOR VIII DEFICIENCY
     Dosage: 300 U, TIW
     Route: 042
     Dates: start: 20190710
  3. KOGENATE FS [Suspect]
     Active Substance: ANTIHEMOPHILIC FACTOR, HUMAN RECOMBINANT
     Indication: FACTOR VIII DEFICIENCY
     Dosage: 3000 IU? THREE TIMES A WEEK
     Dates: start: 20190710
  4. KOGENATE FS [Suspect]
     Active Substance: ANTIHEMOPHILIC FACTOR, HUMAN RECOMBINANT
     Indication: FACTOR VIII DEFICIENCY
     Dosage: 3000 U, THREE TIMES A WEEK AND PRN
     Route: 042
  5. KOGENATE FS [Suspect]
     Active Substance: ANTIHEMOPHILIC FACTOR, HUMAN RECOMBINANT
     Indication: FACTOR VIII DEFICIENCY
     Dosage: 3000 U, TIW
     Route: 042
     Dates: start: 2019
  6. KOGENATE FS [Suspect]
     Active Substance: ANTIHEMOPHILIC FACTOR, HUMAN RECOMBINANT
     Indication: FACTOR VIII DEFICIENCY
     Dosage: ONE MINOR AND ONE MAJOR DOSES WERE USED TO TREAT BACK BLEED
  7. KOGENATE FS [Suspect]
     Active Substance: ANTIHEMOPHILIC FACTOR, HUMAN RECOMBINANT
     Indication: FACTOR VIII DEFICIENCY
     Dosage: USED 1 MAJOR AND 2 MINOR DOSES TO RESOLVE ELBOW BLEED
     Dates: start: 202108
  8. KOGENATE FS [Suspect]
     Active Substance: ANTIHEMOPHILIC FACTOR, HUMAN RECOMBINANT
     Indication: FACTOR VIII DEFICIENCY
     Dosage: TOOK A MAJOR AS NEEDED DOSE TO HELP RESOLVE POSSIBLE HIP BLEED
     Route: 042
     Dates: start: 202106

REACTIONS (5)
  - Haemarthrosis [Recovered/Resolved]
  - Muscle injury [None]
  - Haemorrhage [Recovered/Resolved]
  - Traumatic haemorrhage [Recovered/Resolved]
  - Haemarthrosis [Recovered/Resolved]

NARRATIVE: CASE EVENT DATE: 20210505
